FAERS Safety Report 5560552-5 (Version None)
Quarter: 2007Q4

REPORT INFORMATION
  Report Type: 
  Country: None (occurrence: None)
  Receive Date: 20071215
  Receipt Date: 20071108
  Transmission Date: 20080405
  Serious: No
  Sender: FDA-Public Use
  Company Number: US-ABBOTT-07P-163-0424437-00

PATIENT
  Sex: Female
  Weight: 65.83 kg

DRUGS (1)
  1. HUMIRA [Suspect]
     Indication: GRANULOMA ANNULARE
     Dosage: LOT #/EXP NOT AVAILABLE-THE PATIENT DISCARDED BOX AND SYRINGE
     Route: 058
     Dates: start: 20060101

REACTIONS (1)
  - FUNGAL INFECTION [None]
